FAERS Safety Report 9234325 (Version 1)
Quarter: 2013Q1

REPORT INFORMATION
  Report Type: Spontaneous
  Country: US (occurrence: None)
  Receive Date: 20121031
  Receipt Date: 20121031
  Transmission Date: 20140127
  Serious: No
  Sender: FDA-Public Use
  Company Number: PHEH2012US012620

PATIENT
  Age: 54 Year
  Sex: Female

DRUGS (4)
  1. GILENYA [Suspect]
     Indication: MULTIPLE SCLEROSIS
     Route: 048
  2. FLUOXETIN (FLUOXETINE HYDROCHLORIDE) [Concomitant]
  3. ARMODAFINIL [Concomitant]
  4. VITAMIN D (ERGOCALCIFEROL) [Concomitant]

REACTIONS (2)
  - Dental caries [None]
  - Hypoaesthesia oral [None]
